FAERS Safety Report 4591737-2 (Version None)
Quarter: 2005Q1

REPORT INFORMATION
  Report Type: 
  Country: None (occurrence: None)
  Receive Date: 20050218
  Receipt Date: 20050211
  Transmission Date: 20050727
  Serious: Yes (Disabling)
  Sender: FDA-Public Use
  Company Number: 21953

PATIENT
  Age: 38 Year
  Sex: Male
  Weight: 95.2554 kg

DRUGS (9)
  1. NIASPAN [Suspect]
     Indication: BLOOD CHOLESTEROL INCREASED
     Dosage: 500 MG QHS PO
     Route: 048
     Dates: start: 20041224, end: 20050123
  2. NIASPAN [Suspect]
     Indication: BLOOD CHOLESTEROL INCREASED
     Dosage: 1000 MG QHS PO
     Route: 048
     Dates: start: 20050124, end: 20050210
  3. PLAVIX [Concomitant]
  4. ALTACE [Concomitant]
  5. FOLTX [Concomitant]
  6. LIPITOR [Concomitant]
  7. NEXIUM [Concomitant]
  8. ASPIRIN [Concomitant]
  9. TOPROL-XL [Concomitant]

REACTIONS (4)
  - ABDOMINAL PAIN [None]
  - IMPAIRED WORK ABILITY [None]
  - THERAPY NON-RESPONDER [None]
  - VOMITING [None]
